FAERS Safety Report 8603037-1 (Version None)
Quarter: 2012Q3

REPORT INFORMATION
  Report Type: 
  Country: None (occurrence: None)
  Receive Date: 20120817
  Receipt Date: 20120619
  Transmission Date: 20120928
  Serious: No
  Sender: FDA-Public Use
  Company Number: US-GLAXOSMITHKLINE-A0982366A

PATIENT
  Age: 61 Year
  Sex: Female
  Weight: 94.5 kg

DRUGS (16)
  1. LEVOTHYROXINE SODIUM [Concomitant]
  2. VITAMIN D [Concomitant]
  3. SYMBICORT [Concomitant]
  4. LEXAPRO [Concomitant]
  5. TYLENOL [Concomitant]
  6. COZAAR [Concomitant]
  7. CRESTOR [Concomitant]
  8. ASPIRIN [Concomitant]
  9. AZOR [Concomitant]
  10. XANAX [Concomitant]
  11. ESTRACE [Concomitant]
  12. VOTRIENT [Suspect]
     Indication: PRODUCT USED FOR UNKNOWN INDICATION
     Dosage: 800MG PER DAY
     Route: 048
  13. NORVASC [Concomitant]
  14. HYDROCHLOROTHIAZIDE [Concomitant]
  15. ZOFRAN [Concomitant]
  16. SENNA [Concomitant]

REACTIONS (8)
  - DIARRHOEA [None]
  - NAUSEA [None]
  - DEPRESSION [None]
  - ANXIETY [None]
  - DIZZINESS [None]
  - ABDOMINAL DISCOMFORT [None]
  - FATIGUE [None]
  - ALOPECIA [None]
